FAERS Safety Report 19998638 (Version 1)
Quarter: 2021Q4

REPORT INFORMATION
  Report Type: Spontaneous
  Country: US (occurrence: US)
  Receive Date: 20211026
  Receipt Date: 20211026
  Transmission Date: 20220303
  Serious: Yes (Other)
  Sender: FDA-Public Use
  Company Number: US-GLAXOSMITHKLINE-US2021GSK221207

PATIENT
  Sex: Male

DRUGS (6)
  1. ZANTAC [Suspect]
     Active Substance: RANITIDINE HYDROCHLORIDE
     Indication: Gastrooesophageal reflux disease
     Dosage: 75 MG, DAILY FOR A COUPLE MONTHS AT A TIME UNTIL SYMPTOMS DECREASED
     Route: 065
     Dates: start: 200001, end: 201008
  2. ZANTAC [Suspect]
     Active Substance: RANITIDINE HYDROCHLORIDE
     Indication: Dyspepsia
     Dosage: 75 MG, DAILY FOR A COUPLE MONTHS AT A TIME UNTIL SYMPTOMS DECREASED
     Route: 065
     Dates: start: 200001, end: 201008
  3. ZANTAC [Suspect]
     Active Substance: RANITIDINE HYDROCHLORIDE
     Indication: Oesophagitis ulcerative
  4. ZANTAC [Suspect]
     Active Substance: RANITIDINE HYDROCHLORIDE
     Indication: Gastrooesophageal reflux disease
     Dosage: 75 MG, DAILY FOR A COUPLE MONTHS AT A TIME UNTIL SYMPTOMS DECREASED
     Route: 065
     Dates: start: 200001, end: 201008
  5. ZANTAC [Suspect]
     Active Substance: RANITIDINE HYDROCHLORIDE
     Indication: Dyspepsia
     Dosage: 75 MG, DAILY FOR A COUPLE MONTHS AT A TIME UNTIL SYMPTOMS DECREASED
     Route: 065
     Dates: start: 200001, end: 201008
  6. ZANTAC [Suspect]
     Active Substance: RANITIDINE HYDROCHLORIDE
     Indication: Oesophagitis ulcerative

REACTIONS (1)
  - Prostate cancer [Unknown]
